FAERS Safety Report 24730269 (Version 2)
Quarter: 2024Q4

REPORT INFORMATION
  Report Type: Spontaneous
  Country: US (occurrence: US)
  Receive Date: 20241213
  Receipt Date: 20241213
  Transmission Date: 20250115
  Serious: Yes (Hospitalization)
  Sender: ROCHE
  Company Number: US-ROCHE-10000148027

PATIENT
  Age: 64 Year
  Sex: Female
  Weight: 97.07 kg

DRUGS (2)
  1. ACTEMRA [Suspect]
     Active Substance: TOCILIZUMAB
     Indication: Lung adenocarcinoma
     Route: 042
     Dates: start: 20240516, end: 20241107
  2. ATEZOLIZUMAB [Suspect]
     Active Substance: ATEZOLIZUMAB
     Indication: Lung adenocarcinoma
     Route: 065
     Dates: start: 20240516, end: 20241107

REACTIONS (2)
  - Hypoxia [Unknown]
  - Embolism [Unknown]
